FAERS Safety Report 22986846 (Version 5)
Quarter: 2023Q4

REPORT INFORMATION
  Report Type: Report from Study
  Country: KR (occurrence: KR)
  Receive Date: 20230926
  Receipt Date: 20231020
  Transmission Date: 20240110
  Serious: Yes (Hospitalization, Other)
  Sender: FDA-Public Use
  Company Number: KR-002147023-NVSC2023KR198921

PATIENT

DRUGS (50)
  1. RUXOLITINIB [Suspect]
     Active Substance: RUXOLITINIB
     Indication: Graft versus host disease
     Dosage: 5 MG, BID
     Route: 048
     Dates: start: 20230706, end: 20230918
  2. RUXOLITINIB [Suspect]
     Active Substance: RUXOLITINIB
     Dosage: 5 MG, QD
     Route: 048
     Dates: start: 20230919, end: 20230922
  3. METHYLON [METHYLPREDNISOLONE] [Concomitant]
     Indication: Graft versus host disease
     Dosage: 6 DOSAGE FORM
     Route: 065
     Dates: start: 20230803, end: 20230808
  4. METHYLON [METHYLPREDNISOLONE] [Concomitant]
     Dosage: 4 DOSAGE FORM
     Route: 065
     Dates: start: 20230809, end: 20230820
  5. METHYLON [METHYLPREDNISOLONE] [Concomitant]
     Dosage: 3 DOSAGE FORM
     Route: 065
     Dates: start: 20230821, end: 20230829
  6. METHYLON [METHYLPREDNISOLONE] [Concomitant]
     Dosage: 2 DOSAGE FORM
     Route: 065
     Dates: start: 20230830, end: 20230910
  7. METHYLON [METHYLPREDNISOLONE] [Concomitant]
     Dosage: 1 DOSAGE FORM
     Route: 065
     Dates: start: 20230911, end: 20230922
  8. METHYLON [METHYLPREDNISOLONE] [Concomitant]
     Dosage: 4 MG, QD
     Route: 065
     Dates: end: 20230922
  9. ACLOVA [ACICLOVIR] [Concomitant]
     Indication: Prophylaxis
     Dosage: 2 DOSAGE FORM
     Route: 065
     Dates: start: 20221123
  10. ACLOVA [ACICLOVIR] [Concomitant]
     Dosage: 400 MILLIGRAM, BID
     Route: 065
  11. SULFAMETHOXAZOLE\TRIMETHOPRIM [Concomitant]
     Active Substance: SULFAMETHOXAZOLE\TRIMETHOPRIM
     Indication: Prophylaxis
     Dosage: 1 DOSAGE FORM, QD (SULFAMETHOXAZOLE (400 MG) +TRIMETHOPRIM (800 MG))
     Route: 065
     Dates: start: 20230628
  12. DIFLUCAN [Concomitant]
     Active Substance: FLUCONAZOLE
     Indication: Prophylaxis
     Dosage: 4 DOSAGE FORM
     Route: 065
     Dates: start: 20230725
  13. DIFLUCAN [Concomitant]
     Active Substance: FLUCONAZOLE
     Dosage: 200 MG, QD
     Route: 065
  14. URSODIOL [Concomitant]
     Active Substance: URSODIOL
     Indication: Graft versus host disease
     Dosage: 200 MG, TID (6 DOSAGE FORM)
     Route: 065
     Dates: start: 20230705, end: 20231006
  15. FOLIC ACID [Concomitant]
     Active Substance: FOLIC ACID
     Indication: Thrombocytopenia
     Dosage: 1 DOSAGE FORM, QD
     Route: 065
     Dates: start: 20210825
  16. NEXIUM [Concomitant]
     Active Substance: ESOMEPRAZOLE MAGNESIUM
     Indication: Prophylaxis
     Dosage: 1 DOSAGE FORM, QD
     Route: 065
     Dates: start: 20230706, end: 20230820
  17. PENIRAMIN [Concomitant]
     Indication: Prophylaxis
     Dosage: 4 MG, QD
     Route: 065
     Dates: start: 20230803, end: 20230803
  18. PENIRAMIN [Concomitant]
     Dosage: 4 MG, QD
     Route: 065
     Dates: start: 20230809, end: 20230809
  19. PENIRAMIN [Concomitant]
     Dosage: 4 MG, QD
     Route: 065
     Dates: start: 20230814, end: 20230814
  20. PENIRAMIN [Concomitant]
     Dosage: 4 MG, QD
     Route: 065
     Dates: start: 20230821, end: 20230821
  21. PENIRAMIN [Concomitant]
     Dosage: 4 MG, QD
     Route: 065
     Dates: start: 20230828, end: 20230828
  22. PENIRAMIN [Concomitant]
     Dosage: 4 MG, QD
     Route: 065
     Dates: start: 20230829, end: 20230829
  23. PENIRAMIN [Concomitant]
     Dosage: 4 MG, QD
     Route: 065
     Dates: start: 20230901, end: 20230901
  24. PENIRAMIN [Concomitant]
     Dosage: 4 MG, QD
     Route: 065
     Dates: start: 20230911, end: 20230911
  25. PENIRAMIN [Concomitant]
     Dosage: 4 MG, QD
     Route: 065
     Dates: start: 20230917, end: 20230917
  26. PENIRAMIN [Concomitant]
     Dosage: 4 MG, QD
     Route: 065
     Dates: start: 20230918, end: 20230918
  27. PENIRAMIN [Concomitant]
     Dosage: 4 MG, QD
     Route: 065
     Dates: start: 20230920, end: 20230920
  28. PENIRAMIN [Concomitant]
     Dosage: 4 MG, QD
     Route: 065
     Dates: start: 20230922, end: 20230922
  29. EXJADE [Concomitant]
     Active Substance: DEFERASIROX
     Indication: Product used for unknown indication
     Dosage: 1 DOSAGE FORM, QD
     Route: 065
     Dates: start: 20230809
  30. PHOSTEN [Concomitant]
     Indication: Product used for unknown indication
     Dosage: 1 DOSAGE FORM (1 AMP) (PP)
     Route: 065
     Dates: start: 20230828, end: 20230828
  31. PHOSTEN [Concomitant]
     Dosage: 20 ML
     Route: 065
     Dates: start: 20230919, end: 20230919
  32. MAXIPIME [Concomitant]
     Active Substance: CEFEPIME HYDROCHLORIDE
     Indication: Prophylaxis
     Dosage: 2 G, TID
     Route: 065
     Dates: start: 20230828, end: 20230903
  33. MAXIPIME [Concomitant]
     Active Substance: CEFEPIME HYDROCHLORIDE
     Dosage: 2 G, TID
     Route: 065
  34. TRAMADOL HYDROCHLORIDE [Concomitant]
     Active Substance: TRAMADOL HYDROCHLORIDE
     Indication: Product used for unknown indication
     Dosage: 2 DOSAGE FORM (AMP)
     Route: 065
     Dates: start: 20230828, end: 20230828
  35. ACETOFEN [ORPHENADRINE CITRATE;PARACETAMOL] [Concomitant]
     Indication: Product used for unknown indication
     Dosage: 150 ML
     Route: 065
     Dates: start: 20230828, end: 20230828
  36. ACETOFEN [ORPHENADRINE CITRATE;PARACETAMOL] [Concomitant]
     Dosage: 1 GRAM
     Route: 065
     Dates: start: 20230918, end: 20230918
  37. ACETOFEN [ORPHENADRINE CITRATE;PARACETAMOL] [Concomitant]
     Dosage: 0.5 G, TID
     Route: 065
  38. TRAMOL [PARACETAMOL] [Concomitant]
     Indication: Product used for unknown indication
     Dosage: 2 DOSAGE FORM
     Route: 065
     Dates: start: 20230828, end: 20230828
  39. TRAMOL [PARACETAMOL] [Concomitant]
     Dosage: 650 MILLIGRAM, TID
     Route: 065
  40. BANAN [Concomitant]
     Active Substance: CEFPODOXIME PROXETIL
     Indication: Prophylaxis
     Dosage: 4 DOSAGE FORM
     Route: 065
     Dates: start: 20230904, end: 20230917
  41. BANAN [Concomitant]
     Active Substance: CEFPODOXIME PROXETIL
     Dosage: 200 MG, BID
     Route: 065
     Dates: end: 20230917
  42. COUGH NOS [Concomitant]
     Active Substance: DEXTROMETHORPHAN HYDROBROMIDE OR DEXTROMETHORPHAN HYDROBROMIDE\DOXYLAMINE SUCCINATE OR DEXTROMETHORP
     Indication: Product used for unknown indication
     Dosage: UNK (3 PACK)
     Route: 065
     Dates: start: 20230922, end: 20230929
  43. LEVODROPROPIZINE [Concomitant]
     Active Substance: LEVODROPROPIZINE
     Indication: Product used for unknown indication
     Dosage: 180 MG
     Route: 065
     Dates: start: 20230922
  44. MEROPENEM [Concomitant]
     Active Substance: MEROPENEM
     Indication: Product used for unknown indication
     Dosage: 3 G
     Route: 065
     Dates: start: 20230918, end: 20230925
  45. VANCOCIN CP [Concomitant]
     Indication: Product used for unknown indication
     Dosage: 3 G
     Route: 065
     Dates: start: 20230918, end: 20231001
  46. PANTOPRAZOLE SODIUM [Concomitant]
     Active Substance: PANTOPRAZOLE SODIUM
     Indication: Prophylaxis
     Dosage: 40 MG
     Route: 065
     Dates: start: 20230920
  47. AMIKACIN SULFATE [Concomitant]
     Active Substance: AMIKACIN SULFATE
     Indication: Prophylaxis
     Dosage: 500 MG
     Route: 065
     Dates: start: 20230918, end: 20230921
  48. TYGACIL [Concomitant]
     Active Substance: TIGECYCLINE
     Indication: Prophylaxis
     Dosage: 100 MG
     Route: 065
     Dates: start: 20230919, end: 20230921
  49. TOPISOL MILK LOTION [Concomitant]
     Indication: Product used for unknown indication
     Dosage: 1 OINTMENT
     Route: 065
     Dates: start: 20231002
  50. INVANZ [Concomitant]
     Active Substance: ERTAPENEM SODIUM
     Indication: Product used for unknown indication
     Dosage: 1 VIAL
     Route: 065
     Dates: start: 20230926, end: 20231002

REACTIONS (2)
  - Escherichia bacteraemia [Recovered/Resolved]
  - Febrile neutropenia [Recovered/Resolved]

NARRATIVE: CASE EVENT DATE: 20230827
